FAERS Safety Report 9188805 (Version 1)
Quarter: 2013Q1

REPORT INFORMATION
  Report Type: Report from Study
  Country: US (occurrence: US)
  Receive Date: 20130326
  Receipt Date: 20130326
  Transmission Date: 20140127
  Serious: Yes (Other)
  Sender: FDA-Public Use
  Company Number: US-BAXTER-2013BAX010006

PATIENT
  Sex: Female
  Weight: 70.45 kg

DRUGS (17)
  1. GAMMAGARD LIQUID [Suspect]
     Indication: DERMATOMYOSITIS
     Dosage: 50 GM/40 GM/50 GM
     Route: 042
     Dates: start: 2007, end: 201301
  2. GAMMAGARD LIQUID [Suspect]
     Indication: OFF LABEL USE
     Route: 042
     Dates: start: 201207, end: 201207
  3. PREDNISONE [Concomitant]
     Indication: DERMATOMYOSITIS
     Dosage: VARYING DOSES
     Route: 065
  4. HYDRALAZINE [Concomitant]
     Indication: HYPERTENSION
     Route: 048
  5. LOPRESSOR [Concomitant]
     Indication: HYPERTENSION
  6. PROCARDIA [Concomitant]
     Indication: HYPERTENSION
     Route: 048
  7. LEVOTHYROXINE [Concomitant]
     Indication: PRODUCT USED FOR UNKNOWN INDICATION
     Route: 048
  8. PAXIL [Concomitant]
     Indication: PRODUCT USED FOR UNKNOWN INDICATION
     Route: 048
  9. ATIVAN [Concomitant]
     Indication: PRODUCT USED FOR UNKNOWN INDICATION
     Dosage: DAILY AND AS NEEDED
     Route: 048
  10. AMBIEN [Concomitant]
     Indication: PRODUCT USED FOR UNKNOWN INDICATION
     Route: 048
  11. ASPIRIN [Concomitant]
     Indication: PRODUCT USED FOR UNKNOWN INDICATION
     Route: 048
  12. ALLEGRA [Concomitant]
     Indication: PRODUCT USED FOR UNKNOWN INDICATION
     Route: 048
  13. VITAMIN D [Concomitant]
     Indication: PRODUCT USED FOR UNKNOWN INDICATION
     Route: 048
  14. CALCIUM [Concomitant]
     Indication: PRODUCT USED FOR UNKNOWN INDICATION
     Route: 048
  15. MULTIVITAMIN [Concomitant]
     Indication: PRODUCT USED FOR UNKNOWN INDICATION
     Route: 048
  16. SUPER B COMPLEX [Concomitant]
     Indication: PRODUCT USED FOR UNKNOWN INDICATION
     Route: 048
  17. CELLCEPT [Concomitant]
     Indication: DERMATOMYOSITIS
     Dates: start: 2012

REACTIONS (1)
  - Retinal detachment [Recovered/Resolved]
